FAERS Safety Report 8801996 (Version 1)
Quarter: 2012Q4

REPORT INFORMATION
  Report Type: Report from Study
  Country: PL (occurrence: PL)
  Receive Date: 20120921
  Receipt Date: 20120921
  Transmission Date: 20130627
  Serious: No
  Sender: FDA-Public Use
  Company Number: PL-UCBSA-065815

PATIENT
  Age: 36 Year
  Sex: Female
  Weight: 95 kg

DRUGS (2)
  1. LACOSAMIDE [Suspect]
     Indication: EPILEPSY
     Route: 048
     Dates: start: 20100210
  2. SOYFEM [Concomitant]
     Indication: SUPPLEMENTATION THERAPY
     Dates: start: 20110405, end: 20120614

REACTIONS (1)
  - Syncope [Recovered/Resolved]
